FAERS Safety Report 16215290 (Version 1)
Quarter: 2019Q2

REPORT INFORMATION
  Report Type: Spontaneous
  Country: US (occurrence: US)
  Receive Date: 20190419
  Receipt Date: 20190419
  Transmission Date: 20190711
  Serious: No
  Sender: FDA-Public Use
  Company Number: US-TRIS PHARMA, INC.-2019TRISPO00417

PATIENT

DRUGS (1)
  1. DEXTROMETHORPHAN POLISTIREX [Suspect]
     Active Substance: DEXTROMETHORPHAN HYDROBROMIDE
     Indication: COUGH
     Dosage: 5 ML, BID (30 MG, TWICE DAILY)
     Route: 048
     Dates: start: 20190327, end: 20190327

REACTIONS (4)
  - Vomiting [Recovered/Resolved]
  - Accidental overdose [None]
  - Inappropriate schedule of product administration [None]
  - Incorrect dose administered [None]

NARRATIVE: CASE EVENT DATE: 20190327
